FAERS Safety Report 19780793 (Version 1)
Quarter: 2021Q3

REPORT INFORMATION
  Report Type: Spontaneous
  Country: US (occurrence: US)
  Receive Date: 20210902
  Receipt Date: 20210902
  Transmission Date: 20211014
  Serious: No
  Sender: FDA-Public Use
  Company Number: US-CELGENEUS-USA-20210808101

PATIENT
  Sex: Female
  Weight: 49.9 kg

DRUGS (1)
  1. REVLIMID [Suspect]
     Active Substance: LENALIDOMIDE
     Indication: PLASMA CELL MYELOMA
     Dosage: 10 MILLIGRAM
     Route: 048
     Dates: start: 20201002

REACTIONS (4)
  - Product dose omission issue [Recovered/Resolved]
  - Nausea [Recovered/Resolved]
  - Seasonal allergy [Recovered/Resolved]
  - Abdominal discomfort [Recovered/Resolved]
